FAERS Safety Report 5023550-6 (Version None)
Quarter: 2006Q2

REPORT INFORMATION
  Report Type: 
  Country: None (occurrence: None)
  Receive Date: 20060606
  Receipt Date: 20060524
  Transmission Date: 20061013
  Serious: Yes (Other)
  Sender: FDA-Public Use
  Company Number: 253578

PATIENT
  Age: 57 Year
  Sex: Male
  Weight: 101.6 kg

DRUGS (10)
  1. NOVORAPID FLEXPEN(NOVORAPID FLEXPEN) SOLUTION FOR INJECTION, 100U/ML [Suspect]
     Indication: INSULIN-REQUIRING TYPE II DIABETES MELLITUS
     Dosage: SEE IMAGE, SUBCUTANEOUS
     Route: 058
     Dates: start: 20030425, end: 20030703
  2. NOVORAPID FLEXPEN(NOVORAPID FLEXPEN) SOLUTION FOR INJECTION, 100U/ML [Suspect]
     Indication: INSULIN-REQUIRING TYPE II DIABETES MELLITUS
     Dosage: SEE IMAGE, SUBCUTANEOUS
     Route: 058
     Dates: start: 20030716
  3. ATORVASTATIN CALCIUM [Concomitant]
  4. MAGNYL (MAGNESIUM OXIDE, ACETYLSALICYLIC ACID) [Concomitant]
  5. POTASSIUM CHLORIDE [Concomitant]
  6. RAMIPRIL [Concomitant]
  7. DURA-ZOK (METOPROLOL) [Concomitant]
  8. CARDIL (DILTIAZEM HYDROCHLORIDE) [Concomitant]
  9. FUROSEMIDE [Concomitant]
  10. OMNIC (TAMSULOSIN HYDROCHLORIDE) [Concomitant]

REACTIONS (1)
  - CHOLANGITIS [None]
